FAERS Safety Report 6107178-2 (Version None)
Quarter: 2009Q1

REPORT INFORMATION
  Report Type: 
  Country: None (occurrence: None)
  Receive Date: 20090309
  Receipt Date: 20090226
  Transmission Date: 20090719
  Serious: Yes (Hospitalization)
  Sender: FDA-Public Use
  Company Number: US-KINGPHARMUSA00001-K200900203

PATIENT
  Age: 87 Year
  Sex: Male

DRUGS (9)
  1. ALTACE [Suspect]
     Dosage: 1.25 MG, QD
     Route: 048
  2. DETENSIEL                          /00802601/ [Suspect]
     Dosage: 10 MG, QD
     Route: 048
  3. DISCOTRINE [Suspect]
     Dosage: 10 MG, QD
     Route: 062
  4. OMIX [Suspect]
     Dosage: 0.4 MG, QD
     Route: 048
  5. PREVISCAN                          /00261401/ [Concomitant]
     Route: 048
  6. ZYLORIC                            /00003301/ [Concomitant]
  7. TOBREX                             /00304201/ [Concomitant]
  8. BICARBONATE [Concomitant]
  9. ELISOR [Concomitant]

REACTIONS (8)
  - ATRIOVENTRICULAR BLOCK COMPLETE [None]
  - BRADYCARDIA [None]
  - HYPERKALAEMIA [None]
  - HYPOALBUMINAEMIA [None]
  - LOSS OF CONSCIOUSNESS [None]
  - MALAISE [None]
  - MYOCARDIAL INFARCTION [None]
  - RENAL FAILURE ACUTE [None]
